FAERS Safety Report 14184336 (Version 2)
Quarter: 2018Q2

REPORT INFORMATION
  Report Type: Spontaneous
  Country: FR (occurrence: FR)
  Receive Date: 20171113
  Receipt Date: 20180410
  Transmission Date: 20180711
  Serious: Yes (Hospitalization, Other)
  Sender: FDA-Public Use
  Company Number: FR-MYLANLABS-16X-056-1260803-00

PATIENT
  Age: 42 Year
  Sex: Female
  Weight: 56 kg

DRUGS (4)
  1. LORMETAZEPAM [Suspect]
     Active Substance: LORMETAZEPAM
     Indication: PRODUCT USED FOR UNKNOWN INDICATION
     Dosage: 14 MG, UNK
     Route: 048
  2. ESCITALOPRAM [Suspect]
     Active Substance: ESCITALOPRAM OXALATE
     Indication: PRODUCT USED FOR UNKNOWN INDICATION
     Dosage: 840 MG, UNK
     Route: 048
  3. VENLAFAXINE [Suspect]
     Active Substance: VENLAFAXINE HYDROCHLORIDE
     Indication: PRODUCT USED FOR UNKNOWN INDICATION
     Dosage: 7875 MG, UNK
     Route: 048
  4. BROMAZEPAM [Suspect]
     Active Substance: BROMAZEPAM
     Indication: PRODUCT USED FOR UNKNOWN INDICATION
     Dosage: 180 MG, UNK
     Route: 048

REACTIONS (10)
  - Toxicity to various agents [Recovered/Resolved]
  - Confusional state [Recovered/Resolved]
  - Hypoglycaemia [Recovered/Resolved]
  - Clonus [Recovered/Resolved]
  - Nystagmus [Recovered/Resolved]
  - Suicide attempt [Recovered/Resolved]
  - Electrocardiogram QT prolonged [Recovered/Resolved]
  - Intentional overdose [Recovered/Resolved]
  - Suicidal ideation [Recovered/Resolved]
  - Psychomotor skills impaired [Recovered/Resolved]
